FAERS Safety Report 9223406 (Version 2)
Quarter: 2013Q2

REPORT INFORMATION
  Report Type: Spontaneous
  Country: US (occurrence: US)
  Receive Date: 20130410
  Receipt Date: 20130416
  Transmission Date: 20140414
  Serious: Yes (Death)
  Sender: FDA-Public Use
  Company Number: US-TEVA-397245USA

PATIENT
  Age: 66 Year
  Sex: Female

DRUGS (4)
  1. ACTIQ [Suspect]
     Indication: BREAKTHROUGH PAIN
     Route: 002
  2. SEROQUEL [Concomitant]
  3. OXYCONTIN [Concomitant]
     Indication: PAIN
     Dosage: BID
     Route: 048
  4. PERCOCET [Concomitant]
     Indication: PAIN
     Dosage: EVERY 1-2 HOURS
     Route: 048

REACTIONS (1)
  - Death [Fatal]
